FAERS Safety Report 24883933 (Version 1)
Quarter: 2025Q1

REPORT INFORMATION
  Report Type: Spontaneous
  Country: US (occurrence: US)
  Receive Date: 20250124
  Receipt Date: 20250124
  Transmission Date: 20250409
  Serious: Yes (Life-Threatening, Other)
  Sender: VERTEX
  Company Number: US-VERTEX PHARMACEUTICALS-2025-000916

PATIENT
  Sex: Male

DRUGS (1)
  1. TRIKAFTA [Suspect]
     Active Substance: ELEXACAFTOR\IVACAFTOR\TEZACAFTOR
     Indication: Cystic fibrosis
     Route: 048
     Dates: start: 20191123

REACTIONS (3)
  - Cerebrovascular accident [Unknown]
  - Intracranial aneurysm [Unknown]
  - Brain injury [Not Recovered/Not Resolved]
